FAERS Safety Report 13017948 (Version 1)
Quarter: 2016Q4

REPORT INFORMATION
  Report Type: Spontaneous
  Country: US (occurrence: US)
  Receive Date: 20161212
  Receipt Date: 20161212
  Transmission Date: 20170207
  Serious: Yes (Other)
  Sender: FDA-Public Use
  Company Number: US-JNJFOC-20161208815

PATIENT
  Age: 27 Year
  Sex: Female
  Weight: 59.3 kg

DRUGS (1)
  1. REMICADE [Suspect]
     Active Substance: INFLIXIMAB
     Indication: INFLAMMATORY BOWEL DISEASE
     Route: 042

REACTIONS (6)
  - Klebsiella infection [Unknown]
  - Pyelonephritis [Unknown]
  - Crohn^s disease [Unknown]
  - Anaemia of chronic disease [Unknown]
  - Hypokalaemia [Unknown]
  - Sepsis [Unknown]
